FAERS Safety Report 7340753-6 (Version None)
Quarter: 2011Q1

REPORT INFORMATION
  Report Type: 
  Country: None (occurrence: None)
  Receive Date: 20110309
  Receipt Date: 20110228
  Transmission Date: 20110831
  Serious: Yes (Hospitalization)
  Sender: FDA-Public Use
  Company Number: JP-ROCHE-763771

PATIENT
  Age: 20 Year
  Sex: Male

DRUGS (2)
  1. TAMIFLU [Suspect]
     Dosage: DOSAGE IS UNCERATAIN
     Route: 048
     Dates: start: 20110113, end: 20110115
  2. TAMIFLU [Suspect]
     Dosage: UNCERTAIN DOSAGE (ABOUT THREE YEARS AGO).
     Route: 048

REACTIONS (1)
  - ABNORMAL BEHAVIOUR [None]
